FAERS Safety Report 8339737 (Version 7)
Quarter: 2012Q4

REPORT INFORMATION
  Report Type: 
  Country: US (occurrence: US)
  Receive Date: 20120117
  Receipt Date: 20121220
  Transmission Date: 20130627
  Serious: Yes (Hospitalization, Other)
  Sender: FDA-Public Use
  Company Number: US-009507513-1201USA01728

PATIENT

DRUGS (4)
  1. FOSAMAX [Suspect]
     Indication: OSTEOPOROSIS
     Dosage: 10 mg, qd
     Route: 048
     Dates: start: 20000417
  2. FOSAMAX [Suspect]
     Dosage: 70 mg, qw
     Route: 048
     Dates: start: 20020129, end: 200804
  3. FOSAMAX [Suspect]
     Indication: OSTEOPOROSIS
     Dosage: 70 mg, qw
     Route: 048
     Dates: start: 20080421, end: 20080708
  4. ALENDRONATE SODIUM [Suspect]
     Indication: OSTEOPOROSIS
     Dosage: 70 mg, UNK
     Route: 048
     Dates: start: 20081010, end: 20081223

REACTIONS (33)
  - Femur fracture [Unknown]
  - Femur fracture [Recovered/Resolved]
  - Femur fracture [Unknown]
  - Depression [Not Recovered/Not Resolved]
  - Anxiety [Not Recovered/Not Resolved]
  - Fracture nonunion [Unknown]
  - Fall [Unknown]
  - Gait disturbance [Unknown]
  - Fall [Unknown]
  - Urinary incontinence [Unknown]
  - Spinal osteoarthritis [Unknown]
  - Intervertebral disc disorder [Unknown]
  - Muscular weakness [Unknown]
  - Musculoskeletal pain [Unknown]
  - Appendicectomy [Unknown]
  - Tonsillectomy [Unknown]
  - Open reduction of fracture [Unknown]
  - Spinal column stenosis [Unknown]
  - Haematocrit decreased [Unknown]
  - Transfusion [Unknown]
  - Pyrexia [Unknown]
  - Nerve compression [Unknown]
  - Spinal osteoarthritis [Unknown]
  - Intervertebral disc protrusion [Unknown]
  - Radiculopathy [Unknown]
  - Varicose vein [Unknown]
  - Phlebitis superficial [Unknown]
  - Varicose vein [Unknown]
  - Ligament sprain [Unknown]
  - Fall [Unknown]
  - Labyrinthitis [Recovering/Resolving]
  - Osteoarthritis [Unknown]
  - Fall [Unknown]
